FAERS Safety Report 20415725 (Version 1)
Quarter: 2022Q1

REPORT INFORMATION
  Report Type: Spontaneous
  Country: US (occurrence: US)
  Receive Date: 20220202
  Receipt Date: 20220202
  Transmission Date: 20220423
  Serious: Yes (Other)
  Sender: FDA-Public Use
  Company Number: US-SANOFI-00951264

PATIENT
  Age: 38 Year
  Sex: Female

DRUGS (1)
  1. DUPIXENT [Suspect]
     Active Substance: DUPILUMAB
     Indication: Product used for unknown indication
     Dosage: UNK

REACTIONS (4)
  - Retinopathy [Recovering/Resolving]
  - Vision blurred [Recovering/Resolving]
  - Limbal stem cell deficiency [Recovering/Resolving]
  - Visual impairment [Recovering/Resolving]
